FAERS Safety Report 4881888-7 (Version None)
Quarter: 2006Q1

REPORT INFORMATION
  Report Type: 
  Country: None (occurrence: None)
  Receive Date: 20060111
  Receipt Date: 20060111
  Transmission Date: 20060701
  Serious: Yes (Other)
  Sender: FDA-Public Use
  Company Number: None

PATIENT
  Age: 68 Year
  Sex: Male
  Weight: 114.3 kg

DRUGS (1)
  1. FLUVASTATIN [Suspect]
     Indication: HYPERLIPIDAEMIA
     Dosage: 40MG, 40MG HS, ORAL
     Route: 048
     Dates: start: 20050713, end: 20051003

REACTIONS (1)
  - BLOOD CREATINE PHOSPHOKINASE INCREASED [None]
